FAERS Safety Report 11419976 (Version 1)
Quarter: 2015Q3

REPORT INFORMATION
  Report Type: Spontaneous
  Country: FR (occurrence: FR)
  Receive Date: 20150826
  Receipt Date: 20150826
  Transmission Date: 20151125
  Serious: Yes (Hospitalization)
  Sender: FDA-Public Use
  Company Number: FR-SA-2015SA127418

PATIENT
  Age: 91 Year
  Sex: Male

DRUGS (9)
  1. BISOPROLOL [Concomitant]
     Active Substance: BISOPROLOL
     Route: 065
  2. MIRTAZAPINE. [Suspect]
     Active Substance: MIRTAZAPINE
     Indication: AGITATION
     Route: 048
     Dates: start: 20150527, end: 20150602
  3. FUROSEMIDE. [Suspect]
     Active Substance: FUROSEMIDE
     Route: 065
     Dates: start: 20150526, end: 20150617
  4. THERALENE [Suspect]
     Active Substance: TRIMEPRAZINE
     Indication: AGITATION
     Route: 048
     Dates: start: 20150527, end: 20150602
  5. LYRICA [Suspect]
     Active Substance: PREGABALIN
     Indication: AGITATION
     Route: 048
     Dates: start: 20150527, end: 20150601
  6. ALDACTONE [Concomitant]
     Active Substance: SPIRONOLACTONE
     Route: 048
     Dates: start: 20150526, end: 20150602
  7. IMOVANE [Suspect]
     Active Substance: ZOPICLONE
     Route: 065
     Dates: end: 20150630
  8. XARELTO [Concomitant]
     Active Substance: RIVAROXABAN
     Route: 065
     Dates: end: 20150602
  9. PARACETAMOL [Concomitant]
     Active Substance: ACETAMINOPHEN
     Route: 065

REACTIONS (1)
  - Confusional state [Recovered/Resolved]

NARRATIVE: CASE EVENT DATE: 20150601
